FAERS Safety Report 15188538 (Version 1)
Quarter: 2018Q3

REPORT INFORMATION
  Report Type: Spontaneous
  Country: US (occurrence: US)
  Receive Date: 20180724
  Receipt Date: 20180724
  Transmission Date: 20181010
  Serious: Yes (Hospitalization, Other)
  Sender: FDA-Public Use
  Company Number: US-ZYDUS-020890

PATIENT
  Age: 71 Year
  Sex: Male

DRUGS (20)
  1. ZIPRASIDONE/ZIPRASIDONE HYDROCHLORIDE/ZIPRASIDONE MESILATE [Suspect]
     Active Substance: ZIPRASIDONE HYDROCHLORIDE\ZIPRASIDONE MESYLATE
     Indication: DELUSION
     Route: 030
  2. VALPROIC ACID. [Interacting]
     Active Substance: VALPROIC ACID
     Indication: CATATONIA
     Dosage: TITRATED TO 1000MG EVERY MORNING AND ORAL 1500MG AT BEDTIME
     Route: 048
  3. ATENOLOL. [Concomitant]
     Active Substance: ATENOLOL
     Indication: PRODUCT USED FOR UNKNOWN INDICATION
     Route: 065
  4. SIMVASTATIN. [Concomitant]
     Active Substance: SIMVASTATIN
     Indication: PRODUCT USED FOR UNKNOWN INDICATION
     Route: 065
  5. VANCOMYCIN [Concomitant]
     Active Substance: VANCOMYCIN
     Indication: CLOSTRIDIUM DIFFICILE INFECTION
     Route: 048
  6. VALPROIC ACID. [Interacting]
     Active Substance: VALPROIC ACID
     Indication: CATATONIA
     Route: 048
  7. LORAZEPAM. [Interacting]
     Active Substance: LORAZEPAM
     Indication: CATATONIA
     Route: 065
  8. ACETYLSALICYLIC ACID [Concomitant]
     Active Substance: ASPIRIN
     Indication: PRODUCT USED FOR UNKNOWN INDICATION
     Route: 065
  9. HALOPERIDOL. [Suspect]
     Active Substance: HALOPERIDOL
     Indication: AGITATION
     Route: 065
  10. OLANZAPINE. [Suspect]
     Active Substance: OLANZAPINE
     Indication: PROPHYLAXIS
     Route: 048
  11. AMLODIPINE [Concomitant]
     Active Substance: AMLODIPINE BESYLATE
     Indication: PRODUCT USED FOR UNKNOWN INDICATION
     Route: 065
  12. TAMSULOSIN/TAMSULOSIN HYDROCHLORIDE [Concomitant]
     Indication: PRODUCT USED FOR UNKNOWN INDICATION
     Route: 065
  13. ZIPRASIDONE/ZIPRASIDONE HYDROCHLORIDE/ZIPRASIDONE MESILATE [Suspect]
     Active Substance: ZIPRASIDONE HYDROCHLORIDE\ZIPRASIDONE MESYLATE
     Indication: DELUSION
     Route: 048
  14. VALPROIC ACID. [Interacting]
     Active Substance: VALPROIC ACID
     Indication: AGITATION
     Route: 042
  15. VALPROIC ACID. [Interacting]
     Active Substance: VALPROIC ACID
     Indication: AGITATION
     Dosage: TITRATED TO 1000MG EVERY MORNING AND ORAL 1500MG AT BEDTIME
     Route: 042
  16. VALPROIC ACID. [Interacting]
     Active Substance: VALPROIC ACID
     Indication: CATATONIA
     Dosage: 250 MG PO IN THE MORNING AND 750 MG PO AT BEDTIME (QHS),
     Route: 048
  17. DIAZEPAM. [Interacting]
     Active Substance: DIAZEPAM
     Indication: PRODUCT USED FOR UNKNOWN INDICATION
     Route: 065
  18. CEFTRIAXONE. [Concomitant]
     Active Substance: CEFTRIAXONE
     Indication: URINARY TRACT INFECTION
     Route: 042
  19. AMPICILLIN [Concomitant]
     Active Substance: AMPICILLIN
     Indication: URINARY TRACT INFECTION
     Route: 065
  20. VALPROIC ACID. [Suspect]
     Active Substance: VALPROIC ACID
     Indication: CATATONIA
     Route: 048

REACTIONS (25)
  - Altered state of consciousness [Recovered/Resolved]
  - Delusion [Recovered/Resolved]
  - Condition aggravated [Recovered/Resolved]
  - Somnolence [Recovered/Resolved]
  - Acute kidney injury [None]
  - Posturing [None]
  - Klebsiella test positive [None]
  - Psychotic disorder [Recovered/Resolved]
  - Delirium [None]
  - Mania [None]
  - Pressure of speech [Recovered/Resolved]
  - Clostridium difficile infection [None]
  - Delirium [Recovered/Resolved]
  - Bacterial test positive [None]
  - Agitation [Recovered/Resolved]
  - Disorientation [Recovered/Resolved]
  - Catatonia [Recovered/Resolved]
  - Tachycardia [Recovered/Resolved]
  - Mental status changes [None]
  - Loss of personal independence in daily activities [None]
  - Urinary tract infection [None]
  - Drug interaction [Recovered/Resolved]
  - Disturbance in attention [Recovered/Resolved]
  - Disinhibition [Recovered/Resolved]
  - Diet refusal [None]
